FAERS Safety Report 14571241 (Version 1)
Quarter: 2018Q1

REPORT INFORMATION
  Report Type: Spontaneous
  Country: AR (occurrence: AR)
  Receive Date: 20180226
  Receipt Date: 20180226
  Transmission Date: 20180509
  Serious: Yes (Other)
  Sender: FDA-Public Use
  Company Number: PHHY2018AR030204

PATIENT
  Age: 69 Year
  Sex: Female

DRUGS (1)
  1. ONBRIZE CORT [Suspect]
     Active Substance: BUDESONIDE\INDACATEROL MALEATE
     Indication: CHRONIC OBSTRUCTIVE PULMONARY DISEASE
     Dosage: 3 DF, (02 IN MORNING AND 01 AT NIGHT)
     Route: 065
     Dates: start: 2012

REACTIONS (3)
  - Nervousness [Unknown]
  - Memory impairment [Unknown]
  - Choking [Recovered/Resolved]

NARRATIVE: CASE EVENT DATE: 2012
